FAERS Safety Report 18000971 (Version 1)
Quarter: 2020Q3

REPORT INFORMATION
  Report Type: Spontaneous
  Country: NL (occurrence: NL)
  Receive Date: 20200709
  Receipt Date: 20200709
  Transmission Date: 20201103
  Serious: Yes (Life-Threatening, Other)
  Sender: FDA-Public Use
  Company Number: NL-MYLANLABS-2020M1060856

PATIENT
  Sex: Female

DRUGS (6)
  1. DASATINIB. [Suspect]
     Active Substance: DASATINIB
     Dosage: 140 MG, QD
     Dates: end: 201407
  2. NILOTINIB [Suspect]
     Active Substance: NILOTINIB
     Indication: CHRONIC MYELOID LEUKAEMIA
     Dosage: UNK
     Dates: start: 201110
  3. DASATINIB. [Suspect]
     Active Substance: DASATINIB
     Indication: CHRONIC MYELOID LEUKAEMIA
     Dosage: 70 MG, QD
     Dates: start: 2013
  4. NILOTINIB [Suspect]
     Active Substance: NILOTINIB
     Dosage: 200 MG, BID
     Dates: start: 201407, end: 2015
  5. IMATINIB. [Suspect]
     Active Substance: IMATINIB MESYLATE
     Indication: CHRONIC MYELOID LEUKAEMIA
     Dosage: 600 MG, QD
     Dates: end: 2013
  6. IMATINIB. [Suspect]
     Active Substance: IMATINIB MESYLATE
     Dosage: 200 MG, QD
     Dates: start: 201112

REACTIONS (4)
  - Pancytopenia [Unknown]
  - Treatment failure [Unknown]
  - Drug ineffective [Unknown]
  - Philadelphia chromosome positive [Unknown]

NARRATIVE: CASE EVENT DATE: 201110
